FAERS Safety Report 15323980 (Version 1)
Quarter: 2018Q3

REPORT INFORMATION
  Report Type: Spontaneous
  Country: JP (occurrence: JP)
  Receive Date: 20180828
  Receipt Date: 20180828
  Transmission Date: 20181010
  Serious: Yes (Other)
  Sender: FDA-Public Use
  Company Number: JP-TEVA-2018-JP-948251

PATIENT
  Age: 63 Year
  Sex: Female

DRUGS (7)
  1. BETAMETHASONE. [Suspect]
     Active Substance: BETAMETHASONE
     Indication: GASTROENTERITIS EOSINOPHILIC
     Dosage: 4 MILLIGRAM DAILY;
     Route: 065
  2. SULBACTAM/CEFOPERAZONE [Concomitant]
     Active Substance: CEFOPERAZONE\SULBACTAM
     Indication: JAUNDICE CHOLESTATIC
     Route: 065
  3. PRANLUKAST [Concomitant]
     Active Substance: PRANLUKAST
     Indication: ANTIALLERGIC THERAPY
     Dosage: 450 MILLIGRAM DAILY;
     Route: 065
  4. OLOPATADINE. [Concomitant]
     Active Substance: OLOPATADINE
     Indication: ANTIALLERGIC THERAPY
     Dosage: 10 MILLIGRAM DAILY;
     Route: 065
  5. METHYLPREDNISOLONE. [Suspect]
     Active Substance: METHYLPREDNISOLONE
     Indication: GASTROENTERITIS EOSINOPHILIC
     Dosage: 500 MILLIGRAM DAILY;
     Route: 042
  6. PREDNISOLONE. [Suspect]
     Active Substance: PREDNISOLONE
     Indication: GASTROENTERITIS EOSINOPHILIC
     Dosage: 40 MILLIGRAM DAILY;
     Route: 048
  7. BETAMETHASONE. [Suspect]
     Active Substance: BETAMETHASONE
     Indication: GASTROENTERITIS EOSINOPHILIC
     Dosage: 5 MILLIGRAM DAILY;
     Route: 065

REACTIONS (1)
  - Drug eruption [Recovering/Resolving]
